FAERS Safety Report 23466649 (Version 1)
Quarter: 2024Q1

REPORT INFORMATION
  Report Type: Spontaneous
  Country: US (occurrence: None)
  Receive Date: 20240201
  Receipt Date: 20240201
  Transmission Date: 20240410
  Serious: Yes (Hospitalization, Other)
  Sender: FDA-Public Use
  Company Number: US-MLMSERVICE-20240123-4790515-1

PATIENT
  Age: 34 Year
  Sex: Female

DRUGS (4)
  1. ROPIVACAINE [Suspect]
     Active Substance: ROPIVACAINE
     Indication: Epidural analgesia
  2. ROPIVACAINE [Suspect]
     Active Substance: ROPIVACAINE
     Indication: Epidural analgesia
     Dosage: A BOLUS OF 4 ML WITH A 15-MINUTE LOCKOUT INTERVAL ()
  3. FENTANYL [Suspect]
     Active Substance: FENTANYL\FENTANYL CITRATE
     Indication: Epidural analgesia
     Dosage: A BOLUS OF 4 ML WITH A 15-MINUTE LOCKOUT INTERVAL.
  4. FENTANYL [Suspect]
     Active Substance: FENTANYL\FENTANYL CITRATE
     Indication: Epidural analgesia

REACTIONS (2)
  - Post lumbar puncture syndrome [Recovering/Resolving]
  - Cerebrospinal fluid leakage [Unknown]
